FAERS Safety Report 7624527-4 (Version None)
Quarter: 2011Q3

REPORT INFORMATION
  Report Type: 
  Country: None (occurrence: None)
  Receive Date: 20110712
  Receipt Date: 20110701
  Transmission Date: 20111222
  Serious: Yes (Other)
  Sender: FDA-Public Use
  Company Number: 969591

PATIENT
  Age: 51 Year
  Sex: Female
  Weight: 59.09 kg

DRUGS (7)
  1. DECADRON [Concomitant]
  2. ZANTAC [Concomitant]
  3. ALOXI [Concomitant]
  4. BENADRYL [Concomitant]
  5. CYTOXAN [Concomitant]
  6. NEULASTA [Concomitant]
  7. DOCETAXEL [Suspect]
     Indication: PRODUCT USED FOR UNKNOWN INDICATION
     Dosage: 125 MG, Q3WKS, INTRAVENOUS (NOT SPECIFIED)
     Route: 042
     Dates: start: 20110523, end: 20110614

REACTIONS (2)
  - PHOTODERMATOSIS [None]
  - BURNS THIRD DEGREE [None]
